FAERS Safety Report 13979273 (Version 1)
Quarter: 2017Q3

REPORT INFORMATION
  Report Type: Spontaneous
  Country: CN (occurrence: CN)
  Receive Date: 20170914
  Receipt Date: 20170914
  Transmission Date: 20171128
  Serious: Yes (Hospitalization, Other)
  Sender: FDA-Public Use
  Company Number: CN-009507513-1709CHN003475

PATIENT
  Age: 83 Year
  Sex: Female

DRUGS (3)
  1. CEFTRIAXONE SODIUM. [Suspect]
     Active Substance: CEFTRIAXONE SODIUM
     Indication: LUNG INFECTION
     Dosage: 2 G, QD
     Route: 041
     Dates: start: 20170630, end: 20170710
  2. ZOCOR [Suspect]
     Active Substance: SIMVASTATIN
     Indication: HYPERLIPIDAEMIA
     Dosage: 20 MG, QD
     Route: 048
     Dates: start: 20170705, end: 20170714
  3. LEVOFLOXACIN LACTATE (+) SODIUM CHLORIDE [Suspect]
     Active Substance: LEVOFLOXACIN LACTATE
     Indication: LUNG INFECTION
     Dosage: 0.3 G, QD
     Route: 041
     Dates: start: 20170703, end: 20170710

REACTIONS (3)
  - Mental disorder [Recovering/Resolving]
  - Depressed level of consciousness [Recovering/Resolving]
  - Hepatic function abnormal [Recovering/Resolving]

NARRATIVE: CASE EVENT DATE: 20170707
